FAERS Safety Report 8919665 (Version 2)
Quarter: 2012Q4

REPORT INFORMATION
  Report Type: 
  Country: US (occurrence: US)
  Receive Date: 20121121
  Receipt Date: 20121203
  Transmission Date: 20130627
  Serious: No
  Sender: FDA-Public Use
  Company Number: US-BIOGENIDEC-2012BI053698

PATIENT
  Age: 20 Year
  Sex: Male

DRUGS (1)
  1. TYSABRI [Suspect]
     Indication: CROHN^S DISEASE
     Route: 042
     Dates: start: 20121102, end: 20121102

REACTIONS (4)
  - Throat tightness [Unknown]
  - Hot flush [Unknown]
  - Feeling hot [Recovered/Resolved]
  - Paraesthesia [Unknown]
